FAERS Safety Report 4317986-6 (Version None)
Quarter: 2004Q1

REPORT INFORMATION
  Report Type: 
  Country: None (occurrence: None)
  Receive Date: 20040316
  Receipt Date: 20040126
  Transmission Date: 20041129
  Serious: Yes (Life-Threatening, Hospitalization)
  Sender: FDA-Public Use
  Company Number: PHBS2004JP01482

PATIENT
  Age: 69 Year
  Sex: Female
  Weight: 45 kg

DRUGS (18)
  1. GLEEVEC [Suspect]
     Indication: CHRONIC MYELOID LEUKAEMIA
     Dosage: 400 MG/D
     Route: 048
     Dates: start: 20031009, end: 20031208
  2. GLEEVEC [Suspect]
     Dosage: 300 MG/D
     Route: 048
     Dates: start: 20031209, end: 20040105
  3. ARTIST [Suspect]
     Dosage: 2.5 MG/D
     Route: 048
     Dates: start: 20040106, end: 20040114
  4. THYRADIN S [Concomitant]
     Dosage: 25-50-75 UG/D
     Route: 048
     Dates: start: 20031009, end: 20031101
  5. THYRADIN S [Concomitant]
     Dosage: 100 UG/D
     Route: 048
     Dates: start: 20031101
  6. ALLELOCK [Concomitant]
     Dosage: 5 MG/D
     Route: 048
     Dates: start: 20031209
  7. ALLELOCK [Concomitant]
     Dosage: 10 MG/D
     Route: 048
  8. TORSEMIDE [Concomitant]
     Dosage: 4 MG/D
     Route: 048
     Dates: start: 20031118, end: 20031201
  9. LASIX [Concomitant]
     Dosage: 20 MG/D
     Route: 048
     Dates: start: 20030927
  10. LASIX [Concomitant]
     Dosage: 20 MG/D
     Route: 048
     Dates: start: 20031202, end: 20031225
  11. LASIX [Concomitant]
     Dosage: 50 MG X2
     Route: 042
  12. ALDACTONE [Concomitant]
     Dosage: 25 MG/D
     Route: 048
     Dates: start: 20031202, end: 20031225
  13. DIGOSIN [Concomitant]
     Dosage: 0.125 MG/D
     Route: 048
     Dates: start: 20030927, end: 20031008
  14. SILECE [Concomitant]
     Dosage: 1 MG/D
     Route: 048
     Dates: start: 20030927, end: 20031022
  15. NAUZELIN [Concomitant]
     Dosage: 30-10 MG/D
     Route: 048
     Dates: start: 20031009
  16. ZYLORIC ^FAES^ [Concomitant]
     Dosage: 200-100 MG/D
     Route: 048
     Dates: start: 20031009, end: 20031030
  17. MAGNESIUM OXIDE HEAVY [Concomitant]
     Dosage: 1 G/D
     Route: 048
     Dates: start: 20031009, end: 20031015
  18. ROHYPNOL [Concomitant]
     Dosage: 0.5 MG/D
     Route: 048
     Dates: start: 20031023, end: 20031112

REACTIONS (34)
  - ANOREXIA [None]
  - ATRIAL FIBRILLATION [None]
  - BLOOD CREATINE PHOSPHOKINASE INCREASED [None]
  - BLOOD CREATININE INCREASED [None]
  - BLOOD POTASSIUM INCREASED [None]
  - CARDIAC FAILURE [None]
  - COUGH [None]
  - DYSPNOEA EXACERBATED [None]
  - EOSINOPHIL COUNT INCREASED [None]
  - EOSINOPHILIA [None]
  - GENERALISED OEDEMA [None]
  - GRANULOCYTE COUNT DECREASED [None]
  - HAEMOGLOBIN DECREASED [None]
  - HYPERURICAEMIA [None]
  - HYPOTHYROIDISM [None]
  - LEUKOPENIA [None]
  - LIVER FUNCTION TEST ABNORMAL [None]
  - METABOLIC ACIDOSIS [None]
  - MYOGLOBINURIA [None]
  - NASOPHARYNGITIS [None]
  - OEDEMA PERIPHERAL [None]
  - ORTHOPNOEA [None]
  - PAIN [None]
  - PALLOR [None]
  - PLEURAL EFFUSION [None]
  - PROTEINURIA [None]
  - PRURITUS [None]
  - PULMONARY CONGESTION [None]
  - RHABDOMYOLYSIS [None]
  - VENTRICULAR HYPOKINESIA [None]
  - WALKING DISABILITY [None]
  - WEIGHT DECREASED [None]
  - WEIGHT INCREASED [None]
  - WHEEZING [None]
